FAERS Safety Report 20986257 (Version 1)
Quarter: 2022Q2

REPORT INFORMATION
  Report Type: Spontaneous
  Country: US (occurrence: None)
  Receive Date: 20220617
  Receipt Date: 20220617
  Transmission Date: 20220721
  Serious: No
  Sender: FDA-Public Use
  Company Number: None

PATIENT
  Sex: Female

DRUGS (1)
  1. VERZENIO [Suspect]
     Active Substance: ABEMACICLIB
     Dosage: FREQUENCY : TWICE A DAY;?
     Route: 048
     Dates: start: 20210924

REACTIONS (5)
  - Cough [None]
  - Pyrexia [None]
  - Chills [None]
  - Bronchitis [None]
  - Pulmonary toxicity [None]
